FAERS Safety Report 15653980 (Version 2)
Quarter: 2018Q4

REPORT INFORMATION
  Report Type: Spontaneous
  Country: JP (occurrence: JP)
  Receive Date: 20181125
  Receipt Date: 20181207
  Transmission Date: 20190205
  Serious: Yes (Other)
  Sender: FDA-Public Use
  Company Number: JP-UCBSA-2018051968

PATIENT
  Age: 3 Year

DRUGS (7)
  1. LEVOCETIRIZINE HYDROCHLORIDE [Suspect]
     Active Substance: LEVOCETIRIZINE HYDROCHLORIDE
     Indication: UPPER RESPIRATORY TRACT INFLAMMATION
     Dosage: 2.5 ML, BID
     Route: 048
     Dates: start: 20170511, end: 20170527
  2. EPINASTINE HYDROCHLORIDE. [Suspect]
     Active Substance: EPINASTINE HYDROCHLORIDE
     Indication: HYPERSENSITIVITY
     Dosage: 0.6 G, PRN
     Dates: start: 20170406
  3. OLOPATADINE. [Suspect]
     Active Substance: OLOPATADINE
     Indication: UPPER RESPIRATORY TRACT INFLAMMATION
     Dosage: 0.5 G, BID
     Route: 048
     Dates: start: 20170311, end: 20170321
  4. EPINASTINE HYDROCHLORIDE. [Concomitant]
     Active Substance: EPINASTINE HYDROCHLORIDE
     Indication: PRODUCT USED FOR UNKNOWN INDICATION
     Dosage: 0.55 G, QD
     Dates: start: 20170403
  5. CLEMASTINE FUMARATE. [Suspect]
     Active Substance: CLEMASTINE FUMARATE
     Indication: UPPER RESPIRATORY TRACT INFLAMMATION
     Dosage: 0.15 G, QD
     Route: 048
     Dates: start: 20170214, end: 20170302
  6. CETIRIZINE HYDROCHLORIDE. [Concomitant]
     Active Substance: CETIRIZINE HYDROCHLORIDE
     Indication: PRODUCT USED FOR UNKNOWN INDICATION
  7. LEVOCETIRIZINE HYDROCHLORIDE [Suspect]
     Active Substance: LEVOCETIRIZINE HYDROCHLORIDE
     Indication: OFF LABEL USE

REACTIONS (6)
  - Alopecia areata [Recovering/Resolving]
  - Alopecia totalis [Recovering/Resolving]
  - Off label use [Unknown]
  - Autoimmune disorder [Recovering/Resolving]
  - Quality of life decreased [Unknown]
  - Emotional distress [Unknown]

NARRATIVE: CASE EVENT DATE: 20170511
